FAERS Safety Report 14002934 (Version 2)
Quarter: 2017Q4

REPORT INFORMATION
  Report Type: Spontaneous
  Country: US (occurrence: US)
  Receive Date: 20170922
  Receipt Date: 20171128
  Transmission Date: 20180321
  Serious: Yes (Death, Hospitalization)
  Sender: FDA-Public Use
  Company Number: US-INSYS THERAPEUTICS, INC-INS201709-000557

PATIENT
  Age: 60 Year
  Sex: Male
  Weight: 80.3 kg

DRUGS (41)
  1. CHOLECALCIFEROL [Concomitant]
     Active Substance: CHOLECALCIFEROL
     Route: 048
  2. ENTRESTO [Concomitant]
     Active Substance: SACUBITRIL\VALSARTAN
     Dates: start: 20170527
  3. VITAMIN B1 [Concomitant]
     Active Substance: THIAMINE HYDROCHLORIDE
     Route: 048
  4. FENTANYL TRANSDERMAL SYSTEM [Concomitant]
     Active Substance: FENTANYL
  5. ZYLOPRIM [Concomitant]
     Active Substance: ALLOPURINOL
  6. COENZYME Q10 [Concomitant]
     Active Substance: UBIDECARENONE
     Route: 048
  7. LASIX [Concomitant]
     Active Substance: FUROSEMIDE
     Dates: start: 20170328
  8. INCRUSE ELLIPTA [Concomitant]
     Active Substance: UMECLIDINIUM BROMIDE
     Dates: start: 20170417
  9. IMODIUM [Concomitant]
     Active Substance: LOPERAMIDE HYDROCHLORIDE
     Dates: start: 20170106
  10. CLARITIN [Concomitant]
     Active Substance: LORATADINE
     Dates: start: 20170726
  11. MYCOSTATIN [Concomitant]
     Active Substance: NYSTATIN
     Dates: start: 20161223
  12. CLARITIN [Concomitant]
     Active Substance: LORATADINE
     Indication: HYPERSENSITIVITY
  13. ROXICODONE [Concomitant]
     Active Substance: OXYCODONE HYDROCHLORIDE
     Dates: start: 20170823
  14. SUBSYS [Suspect]
     Active Substance: FENTANYL
     Indication: BREAKTHROUGH PAIN
     Route: 060
     Dates: start: 20170823
  15. PROVENTIL [Concomitant]
     Active Substance: ALBUTEROL
     Indication: WHEEZING
     Dates: start: 20161114, end: 20171114
  16. XANAX [Concomitant]
     Active Substance: ALPRAZOLAM
     Indication: ANXIETY
     Dates: start: 20170627
  17. ALDACTONE [Concomitant]
     Active Substance: SPIRONOLACTONE
  18. DIGOX [Concomitant]
     Active Substance: DIGOXIN
     Dates: start: 20170221
  19. COLACE [Concomitant]
     Active Substance: DOCUSATE SODIUM
  20. NEURONTIN [Concomitant]
     Active Substance: GABAPENTIN
     Dates: start: 20170822, end: 20170921
  21. CORLANOR [Concomitant]
     Active Substance: IVABRADINE HYDROCHLORIDE
  22. MAGIC SWIZZLE [Concomitant]
     Dates: start: 20170526
  23. NICODERM CQ [Concomitant]
     Active Substance: NICOTINE
  24. ZANTAC [Concomitant]
     Active Substance: RANITIDINE HYDROCHLORIDE
  25. INCRUSE ELLIPTA [Concomitant]
     Active Substance: UMECLIDINIUM BROMIDE
     Dates: start: 20170417
  26. ASPIRIN. [Concomitant]
     Active Substance: ASPIRIN
     Route: 048
  27. FLONASE [Concomitant]
     Active Substance: FLUTICASONE PROPIONATE
     Route: 060
     Dates: start: 20170427, end: 20170427
  28. HYDROMET [Concomitant]
     Active Substance: HOMATROPINE METHYLBROMIDE\HYDROCODONE BITARTRATE
     Indication: COUGH
  29. DUONEB [Concomitant]
     Active Substance: ALBUTEROL SULFATE\IPRATROPIUM BROMIDE
  30. TOPROL XL [Concomitant]
     Active Substance: METOPROLOL SUCCINATE
     Dates: start: 20170527
  31. ZOFRAN [Concomitant]
     Active Substance: ONDANSETRON HYDROCHLORIDE
     Indication: NAUSEA
     Dates: start: 20170726
  32. MEDROL [Concomitant]
     Active Substance: METHYLPREDNISOLONE
     Dates: start: 20170822
  33. DECADRON [Concomitant]
     Active Substance: DEXAMETHASONE
     Dates: start: 20170118
  34. SUDAFED [Concomitant]
     Active Substance: PSEUDOEPHEDRINE HYDROCHLORIDE
     Dates: start: 20170808
  35. ALDACTONE [Concomitant]
     Active Substance: SPIRONOLACTONE
     Dates: start: 20170608
  36. DEPOTESTOTERONE [Concomitant]
     Route: 030
     Dates: start: 20170123
  37. OXYCONTIN [Concomitant]
     Active Substance: OXYCODONE HYDROCHLORIDE
  38. FLEXERIL [Concomitant]
     Active Substance: CYCLOBENZAPRINE HYDROCHLORIDE
     Indication: MUSCLE SPASMS
     Route: 048
     Dates: start: 20170822, end: 20170921
  39. IMODIUM [Concomitant]
     Active Substance: LOPERAMIDE HYDROCHLORIDE
     Dates: start: 20170823
  40. ROXICODONE [Concomitant]
     Active Substance: OXYCODONE HYDROCHLORIDE
     Indication: PAIN
     Dates: start: 20170823
  41. VANCOCIN [Concomitant]
     Active Substance: VANCOMYCIN HYDROCHLORIDE
     Dates: start: 20170327, end: 20170906

REACTIONS (4)
  - Cardio-respiratory arrest [Fatal]
  - Sepsis [Unknown]
  - Shock [Unknown]
  - Fall [Unknown]

NARRATIVE: CASE EVENT DATE: 20170906
